FAERS Safety Report 7077106-4 (Version None)
Quarter: 2010Q4

REPORT INFORMATION
  Report Type: 
  Country: None (occurrence: None)
  Receive Date: 20101101
  Receipt Date: 20101025
  Transmission Date: 20110411
  Serious: Yes (Hospitalization)
  Sender: FDA-Public Use
  Company Number: FR-ROCHE-736426

PATIENT
  Sex: Female

DRUGS (2)
  1. RIVOTRIL [Suspect]
     Indication: EPILEPSY
     Dosage: FORM: 2.5MG/L DROPS ORAL SOLUTION
     Route: 064
     Dates: start: 20090425, end: 20090515
  2. TEGRETOL [Suspect]
     Route: 064
     Dates: end: 20090515

REACTIONS (3)
  - FEEDING DISORDER NEONATAL [None]
  - HYPOTONIA NEONATAL [None]
  - OXYGEN SATURATION DECREASED [None]
